FAERS Safety Report 4691196-5 (Version None)
Quarter: 2005Q2

REPORT INFORMATION
  Report Type: 
  Country: None (occurrence: None)
  Receive Date: 20050614
  Receipt Date: 20050527
  Transmission Date: 20051028
  Serious: Yes (Hospitalization)
  Sender: FDA-Public Use
  Company Number: 2005BI006725

PATIENT
  Age: 45 Year
  Sex: Female

DRUGS (3)
  1. NATALIZUMAB [Suspect]
     Indication: RELAPSING-REMITTING MULTIPLE SCLEROSIS
     Dosage: IV
     Route: 042
     Dates: start: 20041201, end: 20050201
  2. ZOLOFT [Concomitant]
  3. AMITRIPTYLINE HCL [Concomitant]

REACTIONS (9)
  - DEPRESSION [None]
  - DIFFICULTY IN WALKING [None]
  - DIPLOPIA [None]
  - DYSARTHRIA [None]
  - GAIT DISTURBANCE [None]
  - HEADACHE [None]
  - HYPOAESTHESIA [None]
  - OEDEMA PERIPHERAL [None]
  - VISION BLURRED [None]
